FAERS Safety Report 7264880-7 (Version None)
Quarter: 2011Q1

REPORT INFORMATION
  Report Type: 
  Country: None (occurrence: None)
  Receive Date: 20110131
  Receipt Date: 20101123
  Transmission Date: 20110831
  Serious: Yes (Other)
  Sender: FDA-Public Use
  Company Number: US-BAYER-201038054NA

PATIENT
  Sex: Female
  Weight: 102 kg

DRUGS (14)
  1. NAPROXEN SODIUM [Concomitant]
     Dosage: 550 MG, UNK
     Dates: start: 20070227
  2. NAPROXEN SODIUM [Concomitant]
     Indication: INFLAMMATION
     Dosage: 550 MG, UNK
     Route: 048
     Dates: start: 20060812
  3. YASMIN [Suspect]
     Indication: PREMENSTRUAL SYNDROME
     Dosage: UNK
     Dates: start: 20060101, end: 20090101
  4. SINGULAIR [Concomitant]
     Indication: ASTHMA
     Dosage: 10 UNK, UNK
     Route: 048
     Dates: start: 20050101
  5. METOCLOPRAMIDE [Concomitant]
     Indication: NAUSEA
     Dosage: 10 UNK, UNK
     Route: 048
     Dates: start: 20061012
  6. IBUPROFEN [Concomitant]
     Indication: INFLAMMATION
     Dosage: 600 MG, UNK
     Route: 048
     Dates: start: 20030831, end: 20070208
  7. OCELLA [Suspect]
     Indication: ACNE
  8. ALBUTEROL [Concomitant]
     Indication: ASTHMA
     Dosage: UNK
     Dates: start: 20060203
  9. PERCOCET [Concomitant]
  10. COMBIVENT [Concomitant]
     Indication: ASTHMA
     Dosage: UNK
     Dates: start: 20050101
  11. NAPROXEN SODIUM [Concomitant]
     Dosage: 550 MG, UNK
     Dates: start: 20070820
  12. OXYCODONE HCL AND ACETAMINOPHEN [Concomitant]
     Indication: PAIN
     Dosage: UNK
     Route: 048
     Dates: start: 20060812
  13. YAZ [Suspect]
     Indication: PREMENSTRUAL SYNDROME
     Dosage: UNK
     Dates: start: 20060101, end: 20090101
  14. ADVAIR [Concomitant]
     Indication: ASTHMA
     Dosage: UNK
     Dates: start: 20050101

REACTIONS (4)
  - NAUSEA [None]
  - CHOLECYSTITIS CHRONIC [None]
  - CHOLELITHIASIS [None]
  - ABDOMINAL PAIN UPPER [None]
